FAERS Safety Report 23498932 (Version 8)
Quarter: 2025Q3

REPORT INFORMATION
  Report Type: Report from Study
  Country: BR (occurrence: BR)
  Receive Date: 20240208
  Receipt Date: 20250811
  Transmission Date: 20251021
  Serious: Yes (Hospitalization, Other)
  Sender: JOHNSON AND JOHNSON
  Company Number: BR-JNJFOC-20230914383

PATIENT
  Age: 51 Year
  Sex: Female
  Weight: 93 kg

DRUGS (3)
  1. STELARA [Suspect]
     Active Substance: USTEKINUMAB
     Indication: Psoriasis
     Dosage: 45.00 MG / 0.50 ML
     Route: 058
     Dates: start: 20230615, end: 20250310
  2. STELARA [Suspect]
     Active Substance: USTEKINUMAB
     Dosage: FORM STRENGTH: 45.00 MG / 0.50 ML
     Route: 058
  3. STELARA [Suspect]
     Active Substance: USTEKINUMAB
     Dosage: FORM STRENGTH: 45.00 MG / 0.50 ML
     Route: 058
     Dates: end: 20250310

REACTIONS (10)
  - Erysipelas [Unknown]
  - Osteomyelitis [Unknown]
  - Fistula [Unknown]
  - Varicose ulceration [Unknown]
  - Angiopathy [Unknown]
  - Decreased immune responsiveness [Unknown]
  - Arthralgia [Unknown]
  - Psoriasis [Not Recovered/Not Resolved]
  - Off label use [Unknown]
  - Drug ineffective [Unknown]
